FAERS Safety Report 12162033 (Version 1)
Quarter: 2016Q1

REPORT INFORMATION
  Report Type: Spontaneous
  Country: US (occurrence: None)
  Receive Date: 20160308
  Receipt Date: 20160308
  Transmission Date: 20160526
  Serious: Yes (Hospitalization)
  Sender: FDA-Public Use
  Company Number: None

PATIENT
  Age: 42 Year
  Sex: Male
  Weight: 110 kg

DRUGS (6)
  1. TEGRETOL [Suspect]
     Active Substance: CARBAMAZEPINE
     Indication: BIPOLAR DISORDER
     Dosage: RECENT
     Route: 048
  2. DESYREL [Concomitant]
     Active Substance: TRAZODONE HYDROCHLORIDE
  3. ZYPREXA [Concomitant]
     Active Substance: OLANZAPINE
  4. LATUDA [Suspect]
     Active Substance: LURASIDONE HYDROCHLORIDE
  5. COGENTIN [Concomitant]
     Active Substance: BENZTROPINE MESYLATE
  6. ATARAX [Concomitant]
     Active Substance: HYDROXYZINE\HYDROXYZINE HYDROCHLORIDE

REACTIONS (6)
  - Fall [None]
  - Self-medication [None]
  - Dizziness [None]
  - Toxicity to various agents [None]
  - Drug dose omission [None]
  - Alcohol use [None]

NARRATIVE: CASE EVENT DATE: 20150810
